FAERS Safety Report 6531925-9 (Version None)
Quarter: 2010Q1

REPORT INFORMATION
  Report Type: 
  Country: None (occurrence: None)
  Receive Date: 20100108
  Receipt Date: 20091230
  Transmission Date: 20100710
  Serious: Yes (Hospitalization)
  Sender: FDA-Public Use
  Company Number: US-JNJFOC-20100100296

PATIENT
  Age: 66 Year
  Sex: Female
  Weight: 92.53 kg

DRUGS (7)
  1. TYLENOL (CAPLET) [Suspect]
     Route: 048
  2. TYLENOL (CAPLET) [Suspect]
     Indication: SPONDYLITIS
     Route: 048
  3. MOBIC [Concomitant]
     Indication: ARTHRITIS
     Route: 048
  4. LEVOXYL [Concomitant]
     Indication: HYPOTHYROIDISM
     Route: 048
  5. DIOVAN HCT [Concomitant]
     Indication: HYPERTENSION
     Route: 048
  6. ALENDRONATE SODIUM [Concomitant]
     Indication: OSTEOPOROSIS
  7. CITRACAL W / VITAMIN D [Concomitant]
     Indication: OSTEOPOROSIS

REACTIONS (2)
  - ADVERSE EVENT [None]
  - PRODUCT QUALITY ISSUE [None]
